FAERS Safety Report 24944068 (Version 3)
Quarter: 2025Q1

REPORT INFORMATION
  Report Type: Spontaneous
  Country: DE (occurrence: DE)
  Receive Date: 20250207
  Receipt Date: 20250221
  Transmission Date: 20250409
  Serious: Yes (Other)
  Sender: ABBVIE
  Company Number: DE-DR. FALK PHARMA GMBH-SA-019-25

PATIENT
  Age: 59 Year
  Sex: Male
  Weight: 94 kg

DRUGS (6)
  1. MESALAMINE [Suspect]
     Active Substance: MESALAMINE
     Indication: Colitis
     Route: 065
     Dates: end: 20250124
  2. PREDNISOLONE [Concomitant]
     Active Substance: PREDNISOLONE
     Indication: Colitis
     Route: 065
     Dates: start: 202409
  3. VITAMIN D3 [Concomitant]
     Active Substance: CHOLECALCIFEROL
     Indication: Product used for unknown indication
     Dosage: UNK, QD
     Route: 065
  4. JARDIANCE [Concomitant]
     Active Substance: EMPAGLIFLOZIN
     Indication: Product used for unknown indication
     Dosage: UNK, QD
     Route: 065
  5. METFORMIN [Concomitant]
     Active Substance: METFORMIN HYDROCHLORIDE
     Indication: Product used for unknown indication
     Dosage: UNK, BID
     Route: 065
  6. LEVOTHYROXINE SODIUM [Concomitant]
     Active Substance: LEVOTHYROXINE SODIUM
     Indication: Product used for unknown indication
     Dosage: 175 MICROGRAM, QD
     Route: 065

REACTIONS (1)
  - Glomerulonephritis membranous [Recovering/Resolving]
